FAERS Safety Report 23281914 (Version 1)
Quarter: 2023Q4

REPORT INFORMATION
  Report Type: Spontaneous
  Country: KR (occurrence: KR)
  Receive Date: 20231211
  Receipt Date: 20231211
  Transmission Date: 20240109
  Serious: Yes (Other)
  Sender: FDA-Public Use
  Company Number: KR-MYLANLABS-2023M1130564

PATIENT
  Age: 58 Year
  Sex: Male

DRUGS (3)
  1. XALATAN [Suspect]
     Active Substance: LATANOPROST
     Indication: Glaucoma
     Dosage: 1 DOSAGE FORM, QD
     Route: 065
     Dates: start: 20211001
  2. SODIUM HYALURONATE [Concomitant]
     Active Substance: HYALURONATE SODIUM
     Dosage: UNK
     Route: 065
     Dates: start: 20211001
  3. DOBESILATE CALCIUM [Concomitant]
     Dosage: 1 DOSAGE FORM
     Route: 065
     Dates: start: 20211001

REACTIONS (2)
  - Xerophthalmia [Unknown]
  - Asthma [Unknown]

NARRATIVE: CASE EVENT DATE: 20211001
